FAERS Safety Report 14304330 (Version 1)
Quarter: 2017Q4

REPORT INFORMATION
  Report Type: Spontaneous
  Country: AU (occurrence: AU)
  Receive Date: 20171219
  Receipt Date: 20171219
  Transmission Date: 20180321
  Serious: Yes (Other)
  Sender: FDA-Public Use
  Company Number: AU-OTSUKA-DJ20072385

PATIENT
  Sex: Female

DRUGS (1)
  1. ABILIFY [Suspect]
     Active Substance: ARIPIPRAZOLE
     Indication: PRODUCT USED FOR UNKNOWN INDICATION
     Dosage: 10 MG, UNK
     Route: 065

REACTIONS (9)
  - Hypotension [Unknown]
  - Thirst decreased [Unknown]
  - Dental caries [Unknown]
  - Blood cholesterol increased [Unknown]
  - Eye disorder [Unknown]
  - Urine output increased [Unknown]
  - Weight increased [Unknown]
  - Anal incontinence [Unknown]
  - Wolff-Parkinson-White syndrome [Unknown]
